FAERS Safety Report 25081362 (Version 1)
Quarter: 2025Q1

REPORT INFORMATION
  Report Type: Report from Study
  Country: US (occurrence: US)
  Receive Date: 20250316
  Receipt Date: 20250316
  Transmission Date: 20250409
  Serious: Yes (Other)
  Sender: NOVARTIS
  Company Number: US-002147023-NVSC2025US042778

PATIENT
  Age: 37 Year
  Sex: Female

DRUGS (1)
  1. KESIMPTA [Suspect]
     Active Substance: OFATUMUMAB
     Indication: Multiple sclerosis
     Dosage: 20 MG, QW
     Route: 058
     Dates: start: 20250224

REACTIONS (8)
  - Anaphylactic reaction [Recovering/Resolving]
  - Confusional state [Recovering/Resolving]
  - Gait inability [Recovering/Resolving]
  - Wheezing [Recovering/Resolving]
  - Nausea [Recovering/Resolving]
  - Eating disorder [Recovering/Resolving]
  - Hypertension [Recovering/Resolving]
  - Hot flush [Recovering/Resolving]

NARRATIVE: CASE EVENT DATE: 20250224
